FAERS Safety Report 19091899 (Version 1)
Quarter: 2021Q2

REPORT INFORMATION
  Report Type: Spontaneous
  Country: US (occurrence: US)
  Receive Date: 20210405
  Receipt Date: 20210405
  Transmission Date: 20210717
  Serious: Yes (Hospitalization)
  Sender: FDA-Public Use
  Company Number: None

PATIENT
  Age: 65 Year
  Sex: Male

DRUGS (2)
  1. WARFARIN WARFARIN NA (GOLDEN STATE) 5MG TAB [Suspect]
     Active Substance: WARFARIN SODIUM
     Indication: ATRIAL FIBRILLATION
     Route: 048
     Dates: start: 20200618, end: 20210204
  2. WARFARIN WARFARIN NA (GOLDEN STATE) 5MG TAB [Suspect]
     Active Substance: WARFARIN SODIUM
     Indication: PULMONARY EMBOLISM
     Route: 048
     Dates: start: 20200618, end: 20210204

REACTIONS (2)
  - Fall [None]
  - Embolic stroke [None]

NARRATIVE: CASE EVENT DATE: 20210204
